FAERS Safety Report 6700747-8 (Version None)
Quarter: 2010Q2

REPORT INFORMATION
  Report Type: 
  Country: None (occurrence: None)
  Receive Date: 20100428
  Receipt Date: 20100414
  Transmission Date: 20101027
  Serious: Yes (Hospitalization, Other)
  Sender: FDA-Public Use
  Company Number: CA-MEDIMMUNE-MEDI-0010927

PATIENT
  Sex: Female

DRUGS (5)
  1. SYNAGIS [Suspect]
     Route: 030
     Dates: start: 20091120
  2. FUROSEMIDE [Concomitant]
     Route: 048
  3. DIGOXIN [Concomitant]
  4. BOSANTIN [Concomitant]
  5. SILDENAFIL CITRATE [Concomitant]

REACTIONS (2)
  - BRONCHIOLITIS [None]
  - RESPIRATORY TRACT INFECTION [None]
